FAERS Safety Report 17769643 (Version 3)
Quarter: 2020Q3

REPORT INFORMATION
  Report Type: Spontaneous
  Country: JP (occurrence: JP)
  Receive Date: 20200512
  Receipt Date: 20200731
  Transmission Date: 20201102
  Serious: No
  Sender: FDA-Public Use
  Company Number: JP-PFIZER INC-2020179696

PATIENT
  Age: 9 Year

DRUGS (1)
  1. GENOTROPIN [Suspect]
     Active Substance: SOMATROPIN
     Dosage: UNK
     Route: 058

REACTIONS (2)
  - Drug dose omission by device [Unknown]
  - Device information output issue [Unknown]

NARRATIVE: CASE EVENT DATE: 20200501
